FAERS Safety Report 4906677-6 (Version None)
Quarter: 2006Q1

REPORT INFORMATION
  Report Type: 
  Country: None (occurrence: None)
  Receive Date: 20060209
  Receipt Date: 20060206
  Transmission Date: 20060701
  Serious: Yes (Other)
  Sender: FDA-Public Use
  Company Number: 2006AP00594

PATIENT
  Age: 23495 Day
  Sex: Male
  Weight: 60 kg

DRUGS (6)
  1. PULMICORT [Suspect]
     Indication: ASTHMA
     Dosage: 4 INHALATIONS DAILY
     Route: 055
     Dates: start: 20011023, end: 20050915
  2. SPIRIVA [Concomitant]
     Indication: RESPIRATORY DISORDER
  3. OXIS TURBUHALER [Concomitant]
     Route: 055
  4. LIPEX [Concomitant]
     Indication: METABOLIC DISORDER
  5. ATACAND [Concomitant]
     Indication: ESSENTIAL HYPERTENSION
  6. DOTHEP [Concomitant]
     Indication: ANAEMIA

REACTIONS (1)
  - OSTEONECROSIS [None]
